FAERS Safety Report 20151588 (Version 1)
Quarter: 2021Q4

REPORT INFORMATION
  Report Type: Spontaneous
  Country: FR (occurrence: FR)
  Receive Date: 20211206
  Receipt Date: 20211206
  Transmission Date: 20220303
  Serious: Yes (Congenital Anomaly, Other)
  Sender: FDA-Public Use
  Company Number: FR-ABBVIE-21K-056-4183821-00

PATIENT
  Sex: Female

DRUGS (3)
  1. VALPROATE SODIUM [Suspect]
     Active Substance: VALPROATE SODIUM
     Indication: Maternal exposure timing unspecified
     Route: 064
  2. LEVETIRACETAM [Suspect]
     Active Substance: LEVETIRACETAM
     Indication: Maternal exposure timing unspecified
     Route: 064
  3. FOLIC ACID [Concomitant]
     Active Substance: FOLIC ACID
     Indication: Product used for unknown indication

REACTIONS (21)
  - Congenital laryngeal stridor [Unknown]
  - Ear malformation [Unknown]
  - Finger deformity [Recovering/Resolving]
  - Hypertelorism [Unknown]
  - Joint dislocation [Unknown]
  - Autonomic nervous system imbalance [Unknown]
  - Congenital hand malformation [Unknown]
  - Language disorder [Unknown]
  - Dysgraphia [Recovering/Resolving]
  - Dyscalculia [Recovering/Resolving]
  - Reading disorder [Recovering/Resolving]
  - Myopia [Unknown]
  - Bronchiolitis [Unknown]
  - Nasopharyngitis [Unknown]
  - Laryngitis [Unknown]
  - Angina pectoris [Unknown]
  - Rhinitis [Unknown]
  - Bronchitis [Unknown]
  - Disturbance in attention [Unknown]
  - Developmental delay [Unknown]
  - Foetal exposure during pregnancy [Unknown]

NARRATIVE: CASE EVENT DATE: 20091228
